FAERS Safety Report 25759350 (Version 1)
Quarter: 2025Q3

REPORT INFORMATION
  Report Type: Spontaneous
  Country: US (occurrence: US)
  Receive Date: 20250904
  Receipt Date: 20250904
  Transmission Date: 20251021
  Serious: Yes (Other)
  Sender: PARI RESPIRATORY EQUIPMENT
  Company Number: US-PARI RESPIRATORY EQUIPMENT, INC.-2025PAR00064

PATIENT
  Age: 14 Year
  Sex: Male

DRUGS (1)
  1. KITABIS PAK [Suspect]
     Active Substance: TOBRAMYCIN
     Indication: Illness
     Dosage: 5 ML (300 MG), 2X/DAY FOR 2 WEEKS AND OFF FOR 2 WEEKS AND TAKE AGAIN FOR 2 WEEKS FOR AT LEAST 6 MONT

REACTIONS (2)
  - Tracheitis [Unknown]
  - Off label use [Unknown]

NARRATIVE: CASE EVENT DATE: 20250813
